FAERS Safety Report 7836350-6 (Version None)
Quarter: 2011Q4

REPORT INFORMATION
  Report Type: 
  Country: None (occurrence: None)
  Receive Date: 20111024
  Receipt Date: 20111013
  Transmission Date: 20120403
  Serious: Yes (Hospitalization)
  Sender: FDA-Public Use
  Company Number: CN-ASTRAZENECA-2011SE61792

PATIENT
  Age: 58 Year
  Sex: Female

DRUGS (7)
  1. CRESTOR [Suspect]
     Indication: CORONARY ARTERY BYPASS
     Route: 048
     Dates: start: 20110816, end: 20111001
  2. TRIMETHAZIDINE HYDROCHLORIDE [Concomitant]
  3. FOLIC ACID [Concomitant]
  4. LOW MOLECULAR HEPARIN [Concomitant]
  5. ISOSORBIDE DINITRATE [Concomitant]
  6. ASPIRIN [Concomitant]
  7. CLOPIDOGREL [Concomitant]

REACTIONS (3)
  - ASPARTATE AMINOTRANSFERASE INCREASED [None]
  - ALANINE AMINOTRANSFERASE INCREASED [None]
  - OFF LABEL USE [None]
